FAERS Safety Report 7979736-1 (Version None)
Quarter: 2011Q4

REPORT INFORMATION
  Report Type: 
  Country: None (occurrence: None)
  Receive Date: 20111214
  Receipt Date: 20111206
  Transmission Date: 20120403
  Serious: Yes (Other)
  Sender: FDA-Public Use
  Company Number: US-ROCHE-622194

PATIENT
  Sex: Female

DRUGS (3)
  1. ACCUTANE [Suspect]
     Indication: ACNE CYSTIC
     Route: 065
     Dates: start: 20010911, end: 20020201
  2. ORTHO TRI-CYCLEN [Concomitant]
  3. SOTRET [Suspect]
     Indication: ACNE CYSTIC
     Route: 048
     Dates: start: 20070501, end: 20070901

REACTIONS (21)
  - ABDOMINAL ADHESIONS [None]
  - GASTROOESOPHAGEAL REFLUX DISEASE [None]
  - LIP DRY [None]
  - HAEMATOCRIT DECREASED [None]
  - COLITIS ULCERATIVE [None]
  - RED BLOOD CELL COUNT DECREASED [None]
  - BLOOD CHOLESTEROL INCREASED [None]
  - PELVIC ADHESIONS [None]
  - LIP BLISTER [None]
  - DRY SKIN [None]
  - URINARY TRACT INFECTION [None]
  - STRESS [None]
  - ENDOMETRIOSIS [None]
  - XEROSIS [None]
  - CROHN'S DISEASE [None]
  - DEPRESSION [None]
  - HAEMOGLOBIN DECREASED [None]
  - INFLAMMATORY BOWEL DISEASE [None]
  - PROCTITIS [None]
  - SLEEP APNOEA SYNDROME [None]
  - RASH PAPULAR [None]
